FAERS Safety Report 24839524 (Version 1)
Quarter: 2025Q1

REPORT INFORMATION
  Report Type: Spontaneous
  Country: US (occurrence: US)
  Receive Date: 20250114
  Receipt Date: 20250114
  Transmission Date: 20250409
  Serious: No
  Sender: ALEXION PHARMACEUTICALS
  Company Number: US-ASTRAZENECA-202501USA009345US

PATIENT
  Age: 85 Year

DRUGS (10)
  1. FARXIGA [Suspect]
     Active Substance: DAPAGLIFLOZIN PROPANEDIOL
     Route: 065
  2. FARXIGA [Suspect]
     Active Substance: DAPAGLIFLOZIN PROPANEDIOL
     Route: 065
  3. FARXIGA [Suspect]
     Active Substance: DAPAGLIFLOZIN PROPANEDIOL
     Route: 065
  4. FARXIGA [Suspect]
     Active Substance: DAPAGLIFLOZIN PROPANEDIOL
     Route: 065
  5. ENTRESTO [Suspect]
     Active Substance: SACUBITRIL\VALSARTAN
     Dosage: UNK, BID
     Route: 048
  6. ENTRESTO [Suspect]
     Active Substance: SACUBITRIL\VALSARTAN
     Dosage: UNK, BID
  7. METOPROLOL [Suspect]
     Active Substance: METOPROLOL
     Route: 065
  8. METOPROLOL [Suspect]
     Active Substance: METOPROLOL
     Route: 065
  9. METOPROLOL [Suspect]
     Active Substance: METOPROLOL
     Route: 065
  10. METOPROLOL [Suspect]
     Active Substance: METOPROLOL
     Route: 065

REACTIONS (13)
  - Blood potassium increased [Unknown]
  - Memory impairment [Unknown]
  - Blood sodium decreased [Unknown]
  - No adverse event [Unknown]
  - Rhinorrhoea [Unknown]
  - Swelling [Unknown]
  - Weight fluctuation [Unknown]
  - Confusional state [Unknown]
  - Blood creatinine increased [Unknown]
  - Gait disturbance [Unknown]
  - Memory impairment [Unknown]
  - Gait disturbance [Unknown]
  - Asthenia [Unknown]
